FAERS Safety Report 7750488-3 (Version None)
Quarter: 2011Q3

REPORT INFORMATION
  Report Type: 
  Country: None (occurrence: None)
  Receive Date: 20110914
  Receipt Date: 20110907
  Transmission Date: 20111222
  Serious: Yes (Other)
  Sender: FDA-Public Use
  Company Number: JP-PFIZER INC-2011205144

PATIENT
  Age: 60 Year
  Sex: Female

DRUGS (3)
  1. EFUDEX [Concomitant]
     Indication: BREAST CANCER
     Dosage: 500 MG/M2, DAILY
     Route: 041
     Dates: start: 20110823
  2. EPIRUBICIN HYDROCHLORIDE [Suspect]
     Indication: BREAST CANCER
     Dosage: 100 MG/M2, DAILY
     Route: 041
     Dates: start: 20110823
  3. CYCLOPHOSPHAMIDE [Concomitant]
     Indication: BREAST CANCER
     Dosage: 500 MG/M2, DAILY
     Route: 042
     Dates: start: 20110823

REACTIONS (1)
  - ALTERED STATE OF CONSCIOUSNESS [None]
